FAERS Safety Report 10365523 (Version 2)
Quarter: 2014Q3

REPORT INFORMATION
  Report Type: Spontaneous
  Country: US (occurrence: None)
  Receive Date: 20140804
  Receipt Date: 20140813
  Transmission Date: 20150326
  Serious: Yes (Hospitalization)
  Sender: FDA-Public Use
  Company Number: AMAG201400206

PATIENT
  Age: 69 Year
  Sex: Female
  Weight: 59.9 kg

DRUGS (8)
  1. PERCOCET (OXYCODONE HYDROCHLORIDE, PARACETAMOL) [Concomitant]
  2. OXYCODONE (OXYCODONE) [Concomitant]
     Active Substance: OXYCODONE
  3. OMEPRAZOLE. [Concomitant]
     Active Substance: OMEPRAZOLE
  4. AFATINIB (AFATINIB) [Concomitant]
  5. GEMZAR [Concomitant]
     Active Substance: GEMCITABINE HYDROCHLORIDE
  6. FERAHEME [Suspect]
     Active Substance: FERUMOXYTOL NON-STOICHIOMETRIC MAGNETITE
     Indication: IRON DEFICIENCY ANAEMIA
     Dosage: UNK, SINGLE, IV PUSH
     Route: 042
     Dates: start: 20140110, end: 20140110
  7. PROCRIT [Concomitant]
     Active Substance: ERYTHROPOIETIN
  8. DENOSUMAB (DENOSUMAB) [Concomitant]

REACTIONS (11)
  - Hypersensitivity [None]
  - Nausea [None]
  - Infusion related reaction [None]
  - Body temperature increased [None]
  - Adverse drug reaction [None]
  - Flushing [None]
  - Heart rate increased [None]
  - Muscle spasms [None]
  - Back pain [None]
  - Vomiting [None]
  - Pain [None]

NARRATIVE: CASE EVENT DATE: 20140110
